FAERS Safety Report 4629647-4 (Version None)
Quarter: 2005Q2

REPORT INFORMATION
  Report Type: 
  Country: None (occurrence: None)
  Receive Date: 20050406
  Receipt Date: 20050323
  Transmission Date: 20051028
  Serious: Yes (Hospitalization)
  Sender: FDA-Public Use
  Company Number: 2005AP01871

PATIENT
  Age: 67 Year
  Sex: Male
  Weight: 41.8 kg

DRUGS (5)
  1. IRESSA [Suspect]
     Indication: TONGUE NEOPLASM MALIGNANT STAGE UNSPECIFIED
     Dosage: 500 MG DAILY PO
     Dates: start: 20050118
  2. IRESSA [Suspect]
     Indication: TONGUE NEOPLASM MALIGNANT STAGE UNSPECIFIED
     Dosage: 250 MG DAILY PO
     Route: 048
  3. CISPLATIN [Suspect]
     Indication: TONGUE NEOPLASM MALIGNANT STAGE UNSPECIFIED
     Dosage: 20 MG/M2 ONCE SQ
     Dates: start: 20050218, end: 20050218
  4. CISPLATIN [Suspect]
     Indication: TONGUE NEOPLASM MALIGNANT STAGE UNSPECIFIED
     Dosage: 20 MG/M2 ONCE SQ
     Dates: start: 20050301, end: 20050301
  5. RADIOTHERAPY [Suspect]
     Indication: TONGUE NEOPLASM MALIGNANT STAGE UNSPECIFIED
     Dates: start: 20050214, end: 20050214

REACTIONS (7)
  - ASTHENIA [None]
  - DIARRHOEA [None]
  - DYSPHAGIA [None]
  - NAUSEA [None]
  - ORAL INTAKE REDUCED [None]
  - PHARYNGITIS [None]
  - VOMITING [None]
